FAERS Safety Report 18355862 (Version 1)
Quarter: 2020Q4

REPORT INFORMATION
  Report Type: Spontaneous
  Country: US (occurrence: US)
  Receive Date: 20201007
  Receipt Date: 20201007
  Transmission Date: 20210114
  Serious: Yes (Other)
  Sender: FDA-Public Use
  Company Number: US-PFIZER INC-2020383614

PATIENT

DRUGS (2)
  1. BOSUTINIB [Suspect]
     Active Substance: BOSUTINIB
     Dosage: UNK
     Dates: start: 202008
  2. BOSULIF [Suspect]
     Active Substance: BOSUTINIB MONOHYDRATE
     Dosage: UNK
     Dates: start: 202008

REACTIONS (1)
  - Thrombocytopenia [Unknown]
